FAERS Safety Report 6818876-7 (Version None)
Quarter: 2010Q3

REPORT INFORMATION
  Report Type: 
  Country: None (occurrence: None)
  Receive Date: 20100707
  Receipt Date: 20090721
  Transmission Date: 20110219
  Serious: Yes (Other)
  Sender: FDA-Public Use
  Company Number: US-ASTRAZENECA-2007UW13919

PATIENT
  Age: 15251 Day
  Sex: Male

DRUGS (11)
  1. SEROQUEL [Suspect]
     Indication: SLEEP DISORDER
     Route: 048
     Dates: start: 20051201
  2. SEROQUEL [Suspect]
     Route: 048
     Dates: start: 20060201
  3. SEROQUEL [Suspect]
     Dosage: 100 MG TO 300 MG
     Route: 048
     Dates: start: 20070219
  4. GEODON [Concomitant]
     Dates: start: 20060725
  5. PROZAC [Concomitant]
     Dates: start: 20060201
  6. TRAZODONE HYDROCHLORIDE [Concomitant]
     Indication: INSOMNIA
     Dates: start: 20060725
  7. GLIPIZIDE [Concomitant]
     Dates: start: 20060619
  8. ASPIRIN [Concomitant]
     Dates: start: 20060725
  9. INSULIN [Concomitant]
     Dosage: 70/30 26 UNITS IN THE ORNING AND 14 UNITS IN THE EVENING
     Dates: start: 20070311
  10. MOTRIN [Concomitant]
     Dates: start: 20060725
  11. AMLO [Concomitant]
     Dates: start: 20060725

REACTIONS (5)
  - DIABETES MELLITUS [None]
  - DIABETES MELLITUS INADEQUATE CONTROL [None]
  - HYPERGLYCAEMIA [None]
  - NEUROPATHY PERIPHERAL [None]
  - TYPE 1 DIABETES MELLITUS [None]
